FAERS Safety Report 5970754-1 (Version None)
Quarter: 2008Q4

REPORT INFORMATION
  Report Type: 
  Country: None (occurrence: None)
  Receive Date: 20081126
  Receipt Date: 20081111
  Transmission Date: 20090506
  Serious: No
  Sender: FDA-Public Use
  Company Number: US-ABBOTT-08P-163-0486948-00

PATIENT
  Sex: Male

DRUGS (4)
  1. SIMCOR [Suspect]
     Indication: DRUG USE FOR UNKNOWN INDICATION
     Dosage: 500/20 MG AT BEDTIME FOR 2 MONTHS
     Route: 048
     Dates: start: 20080901, end: 20081104
  2. SIMCOR [Suspect]
     Dosage: 1000/20 MG AT BEDTIME
     Route: 048
     Dates: start: 20081104
  3. ACETYLSALICYLIC ACID SRT [Concomitant]
     Indication: PROPHYLAXIS
     Dosage: AT BEDTIME
     Route: 048
  4. ACETYLSALICYLIC ACID SRT [Concomitant]
     Dosage: AT BEDTIME
     Route: 048

REACTIONS (1)
  - FLUSHING [None]
